FAERS Safety Report 18940162 (Version 1)
Quarter: 2021Q1

REPORT INFORMATION
  Report Type: Other
  Country: FR (occurrence: FR)
  Receive Date: 20210224
  Receipt Date: 20210224
  Transmission Date: 20210420
  Serious: Yes (Other)
  Sender: FDA-Public Use
  Company Number: FR-INVENTIA-000085

PATIENT
  Age: 78 Year
  Sex: Female

DRUGS (1)
  1. PALIPERIDONE PALMITATE [Suspect]
     Active Substance: PALIPERIDONE PALMITATE
     Indication: SCHIZOPHRENIA
     Dosage: PP1M 50 MG, TIME SINCE LAST PP INJECTION (20 DAYS)
     Route: 030

REACTIONS (1)
  - Pulmonary embolism [Recovered/Resolved]
